FAERS Safety Report 5686283-9 (Version None)
Quarter: 2008Q1

REPORT INFORMATION
  Report Type: 
  Country: None (occurrence: None)
  Receive Date: 20080328
  Receipt Date: 20070806
  Transmission Date: 20080703
  Serious: No
  Sender: FDA-Public Use
  Company Number: US-BAYER-US-2007-025849

PATIENT
  Age: 38 Year
  Sex: Female
  Weight: 88 kg

DRUGS (4)
  1. MIRENA [Suspect]
     Indication: CONTRACEPTION
     Route: 015
     Dates: start: 20070601, end: 20070628
  2. TOPAMAX [Concomitant]
  3. MOBIC [Concomitant]
  4. NO CONCOMITANT MEDICATION [Concomitant]

REACTIONS (2)
  - GENITAL DISCOMFORT [None]
  - IUCD COMPLICATION [None]
